FAERS Safety Report 4718405-8 (Version None)
Quarter: 2005Q3

REPORT INFORMATION
  Report Type: 
  Country: None (occurrence: None)
  Receive Date: 20050720
  Receipt Date: 20050718
  Transmission Date: 20060218
  Serious: Yes (Life-Threatening)
  Sender: FDA-Public Use
  Company Number: 2005CG01267

PATIENT
  Age: 76 Year
  Sex: Female

DRUGS (7)
  1. XYLOCAINE [Suspect]
     Indication: LOCAL ANAESTHESIA
     Route: 058
     Dates: start: 20050621, end: 20050621
  2. KALINOX [Suspect]
     Indication: ANALGESIC EFFECT
     Dates: start: 20050621, end: 20050621
  3. LEXOMIL [Concomitant]
     Route: 048
  4. STILNOX [Concomitant]
     Route: 048
  5. SULFARLEM S 25 [Concomitant]
     Route: 048
  6. NEURONTIN [Concomitant]
     Route: 048
  7. ARTISIAL [Concomitant]
     Route: 002

REACTIONS (5)
  - CLONUS [None]
  - HEART RATE DECREASED [None]
  - LOSS OF CONSCIOUSNESS [None]
  - PULSE ABSENT [None]
  - SYNCOPE [None]
